FAERS Safety Report 8102012-3 (Version None)
Quarter: 2012Q1

REPORT INFORMATION
  Report Type: 
  Country: None (occurrence: None)
  Receive Date: 20120131
  Receipt Date: 20120125
  Transmission Date: 20120608
  Serious: Yes (Other)
  Sender: FDA-Public Use
  Company Number: RO-ABBOTT-12P-135-0889749-00

PATIENT
  Sex: Male
  Weight: 90 kg

DRUGS (5)
  1. HUMIRA [Suspect]
     Indication: PSORIASIS
     Route: 058
     Dates: start: 20100202, end: 20111216
  2. NIFEDIPINE [Concomitant]
     Indication: ESSENTIAL HYPERTENSION
     Dosage: DAILY DOSE: 20MG
     Route: 048
     Dates: start: 20040401
  3. METHOTREXATE [Concomitant]
     Indication: PRODUCT USED FOR UNKNOWN INDICATION
     Dates: start: 20020101
  4. METHOTREXATE [Concomitant]
     Dates: start: 20090101
  5. METHOTREXATE [Concomitant]
     Dates: start: 20100101

REACTIONS (3)
  - PLEURISY [None]
  - PULMONARY FIBROSIS [None]
  - PULMONARY TUBERCULOSIS [None]
